FAERS Safety Report 21525412 (Version 5)
Quarter: 2022Q4

REPORT INFORMATION
  Report Type: Report from Study
  Country: IT (occurrence: IT)
  Receive Date: 20221030
  Receipt Date: 20221207
  Transmission Date: 20230113
  Serious: Yes (Hospitalization)
  Sender: FDA-Public Use
  Company Number: IT-ABBVIE-4168059

PATIENT
  Age: 67 Year
  Sex: Female
  Weight: 78 kg

DRUGS (13)
  1. VENETOCLAX [Suspect]
     Active Substance: VENETOCLAX
     Indication: Product used for unknown indication
     Route: 048
     Dates: start: 20220924, end: 202210
  2. VENETOCLAX [Suspect]
     Active Substance: VENETOCLAX
     Indication: Product used for unknown indication
     Route: 048
  3. TAZOBACTAM [Concomitant]
     Active Substance: TAZOBACTAM
     Indication: Prophylaxis
     Dosage: 18 GR I.V.
     Route: 042
     Dates: start: 20221006, end: 20221015
  4. TAZOBACTAM [Concomitant]
     Active Substance: TAZOBACTAM
     Indication: Prophylaxis
     Dosage: 18 GR I.V.
     Route: 042
     Dates: start: 20221006, end: 20221015
  5. TAZOBACTAM [Concomitant]
     Active Substance: TAZOBACTAM
     Indication: Prophylaxis
     Dosage: 18 GR I.V.
     Route: 042
     Dates: start: 20221006, end: 20221015
  6. DACOGEN [Suspect]
     Active Substance: DECITABINE
     Indication: Product used for unknown indication
     Dosage: 25 MILLIGRAM
     Route: 065
     Dates: start: 20220924
  7. MEROPENEM [Concomitant]
     Active Substance: MEROPENEM
     Indication: Pyrexia
     Dosage: 4 GR I.V.
     Dates: end: 20221017
  8. CEFIXIME [Concomitant]
     Active Substance: CEFIXIME
     Indication: Pyrexia
     Route: 048
     Dates: start: 20221108
  9. AVIBACTAM SODIUM\CEFTAZIDIME [Concomitant]
     Active Substance: AVIBACTAM SODIUM\CEFTAZIDIME
     Indication: Product used for unknown indication
     Dates: start: 20221018
  10. FILGRASTIM [Concomitant]
     Active Substance: FILGRASTIM
     Indication: Neutropenia
     Dosage: 1 VIAL
     Route: 058
     Dates: start: 20221108
  11. CEFTOBIPROLE [Suspect]
     Active Substance: CEFTOBIPROLE
     Indication: Pyrexia
     Route: 042
     Dates: start: 20221110
  12. TIGECYCLINE [Concomitant]
     Active Substance: TIGECYCLINE
     Indication: Enteritis
     Dates: start: 20221018
  13. MINOCYCLINE [Concomitant]
     Active Substance: MINOCYCLINE HYDROCHLORIDE
     Indication: Product used for unknown indication

REACTIONS (4)
  - Enteritis [Recovered/Resolved]
  - Febrile neutropenia [Not Recovered/Not Resolved]
  - Febrile neutropenia [Not Recovered/Not Resolved]
  - Rash [Unknown]

NARRATIVE: CASE EVENT DATE: 20221016
